FAERS Safety Report 5055139-7 (Version None)
Quarter: 2006Q3

REPORT INFORMATION
  Report Type: 
  Country: None (occurrence: None)
  Receive Date: 20060717
  Receipt Date: 20060707
  Transmission Date: 20061208
  Serious: Yes (Hospitalization)
  Sender: FDA-Public Use
  Company Number: 2006-07-0260

PATIENT
  Age: 50 Year
  Sex: Female

DRUGS (7)
  1. TEMOZOLOMIDE CAPSULES [Suspect]
     Indication: METASTASES TO CENTRAL NERVOUS SYSTEM
     Dosage: 150 MG/M2 ORAL
     Route: 048
     Dates: start: 20060615, end: 20060616
  2. CARBOPLATIN [Suspect]
     Indication: METASTASES TO CENTRAL NERVOUS SYSTEM
     Dosage: 200 MG/M2 INTRAVENOUS
     Route: 042
     Dates: start: 20060615, end: 20060616
  3. OXYCONTIN [Concomitant]
  4. NEXIUM [Concomitant]
  5. ASPIRIN [Concomitant]
  6. CLONIDINE [Concomitant]
  7. PSEUDOEPHEDRINE/CHLORPHENIRAMINE/METHYLSCOPOLAMINE [Concomitant]

REACTIONS (8)
  - APHASIA [None]
  - CEREBRAL INFARCTION [None]
  - CEREBROVASCULAR ACCIDENT [None]
  - HAEMATOMA [None]
  - HAEMORRHAGE [None]
  - HYPERTENSION [None]
  - MENTAL STATUS CHANGES [None]
  - VASCULITIS [None]
